FAERS Safety Report 8376526-5 (Version None)
Quarter: 2012Q2

REPORT INFORMATION
  Report Type: 
  Country: None (occurrence: None)
  Receive Date: 20120522
  Receipt Date: 20120516
  Transmission Date: 20120825
  Serious: Yes (Other)
  Sender: FDA-Public Use
  Company Number: BR-EISAI INC-E2020-10807-SPO-BR

PATIENT
  Age: 79 Year
  Sex: Female
  Weight: 73 kg

DRUGS (12)
  1. DONEPEZIL HYDROCHLORIDE [Suspect]
     Indication: DEMENTIA WITH LEWY BODIES
     Route: 048
     Dates: start: 20120301, end: 20120401
  2. CITALOPRAM HYDROBROMIDE [Concomitant]
     Indication: ANTIDEPRESSANT THERAPY
  3. PROLOPA [Concomitant]
     Indication: DEMENTIA WITH LEWY BODIES
     Dosage: 200MG/5 MG
  4. ASPIRIN [Concomitant]
     Indication: HEART RATE INCREASED
     Dosage: UNKNOWN
  5. ALPRAZOLAM [Concomitant]
     Indication: AGITATION
     Dosage: 1 MG
  6. DIMETICONE [Concomitant]
     Indication: DIVERTICULITIS
     Dosage: UNKNOWN
  7. OMEPRAZOLE [Concomitant]
     Indication: PROPHYLAXIS AGAINST GASTROINTESTINAL ULCER
     Dosage: UNKNOWN
  8. HYDROCHLOROTHIAZIDE [Concomitant]
     Dosage: UNKNOWN
  9. VITAMIN TAB [Concomitant]
     Indication: SUPPLEMENTATION THERAPY
  10. DONEPEZIL HYDROCHLORIDE [Suspect]
     Route: 048
     Dates: start: 20120401
  11. DOLAMIN FLEX [Concomitant]
     Indication: PAIN
     Dosage: 5 MG
  12. CAPOTRIL [Concomitant]
     Indication: BLOOD PRESSURE INCREASED
     Dosage: UNKNOWN

REACTIONS (8)
  - DELIRIUM [None]
  - APHASIA [None]
  - DYSSTASIA [None]
  - BODY TEMPERATURE FLUCTUATION [None]
  - VIRAL INFECTION [None]
  - DIZZINESS [None]
  - FATIGUE [None]
  - ABNORMAL DREAMS [None]
